FAERS Safety Report 6701005-8 (Version None)
Quarter: 2010Q2

REPORT INFORMATION
  Report Type: 
  Country: None (occurrence: None)
  Receive Date: 20100428
  Receipt Date: 20100419
  Transmission Date: 20101027
  Serious: Yes (Disabling, Other)
  Sender: FDA-Public Use
  Company Number: US-ABBOTT-10P-163-0639907-00

PATIENT
  Sex: Male
  Weight: 84.444 kg

DRUGS (6)
  1. HUMIRA [Suspect]
     Indication: RHEUMATOID ARTHRITIS
     Route: 058
     Dates: start: 20090101, end: 20100301
  2. HUMIRA [Suspect]
     Route: 058
     Dates: start: 20100419
  3. ASPIRIN [Concomitant]
     Indication: DRUG USE FOR UNKNOWN INDICATION
  4. PLAVIX [Concomitant]
     Indication: DRUG USE FOR UNKNOWN INDICATION
  5. NEURONTIN [Concomitant]
     Indication: PAIN IN EXTREMITY
  6. LISINOPRIL [Concomitant]
     Indication: DRUG USE FOR UNKNOWN INDICATION

REACTIONS (5)
  - APHASIA [None]
  - ASTHENIA [None]
  - CAROTID ARTERY OCCLUSION [None]
  - CEREBROVASCULAR ACCIDENT [None]
  - HYPOKINESIA [None]
